FAERS Safety Report 6613408-0 (Version None)
Quarter: 2010Q1

REPORT INFORMATION
  Report Type: 
  Country: None (occurrence: None)
  Receive Date: 20100224
  Receipt Date: 20090810
  Transmission Date: 20100710
  Serious: No
  Sender: FDA-Public Use
  Company Number: 2009-00558

PATIENT
  Age: 57 Year
  Sex: Female
  Weight: 60.3284 kg

DRUGS (13)
  1. ZICAM COLD REMEDY GEL SWABS [Suspect]
     Dosage: 2-3 X/DAY - 3-4 DAYS; SPRING 2009 - 3-4 DAYS
  2. ZICAM COLD REMEDY RAPIDMELTS [Suspect]
     Dosage: 2-3 X/DAY - 3-4 DAYS; SPRING 2009 - 3-4 DAYS
  3. GNC MULTIVITAMI N FOR WOMEN [Concomitant]
  4. CO Q10 [Concomitant]
  5. MILK THISTLE SEED [Concomitant]
  6. FLAX SEED OIL [Concomitant]
  7. FISH OIL [Concomitant]
  8. GRAPE SEED EXTRACT [Concomitant]
  9. VITAMIN D [Concomitant]
  10. VITAMIN C [Concomitant]
  11. GARLIC [Concomitant]
  12. GLUCOSAMINE WITH CHONDROITIN [Concomitant]
  13. ASPIRIN [Concomitant]

REACTIONS (2)
  - AGEUSIA [None]
  - ANOSMIA [None]
